FAERS Safety Report 4593933-7 (Version None)
Quarter: 2005Q1

REPORT INFORMATION
  Report Type: 
  Country: None (occurrence: None)
  Receive Date: 20050225
  Receipt Date: 20050222
  Transmission Date: 20050727
  Serious: Yes (Other)
  Sender: FDA-Public Use
  Company Number: 004219

PATIENT
  Age: 63 Year
  Sex: Female

DRUGS (6)
  1. MEDROXYPROGESTERONE ACETATE [Suspect]
     Dosage: ORAL
     Route: 048
     Dates: start: 19820101, end: 20010101
  2. ESTRADIOL [Suspect]
     Dosage: ORAL
     Route: 048
     Dates: start: 19820101, end: 20010101
  3. CENESTINE (SYNTHETIC CONJUGATED ESTROGENS, A) TABLETS [Suspect]
     Dosage: ORAL
     Route: 048
     Dates: start: 19820101, end: 20010101
  4. PREMARIN [Suspect]
     Dosage: ORAL
     Route: 048
     Dates: start: 19820101, end: 20010101
  5. PROVERA [Suspect]
     Dosage: ORAL
     Route: 048
     Dates: start: 19820101, end: 20010101
  6. PREMPRO [Suspect]
     Dosage: ORAL
     Route: 048
     Dates: start: 19820101, end: 20010101

REACTIONS (1)
  - BREAST CANCER FEMALE [None]
